FAERS Safety Report 12108451 (Version 2)
Quarter: 2016Q1

REPORT INFORMATION
  Report Type: Report from Study
  Country: AR (occurrence: AR)
  Receive Date: 20160224
  Receipt Date: 20160301
  Transmission Date: 20160526
  Serious: Yes (Other)
  Sender: FDA-Public Use
  Company Number: AR-ACTELION-A-CH2016-131400

PATIENT
  Age: 57 Year
  Sex: Female

DRUGS (9)
  1. OMEPRAZOLE. [Concomitant]
     Active Substance: OMEPRAZOLE
     Indication: GASTROOESOPHAGEAL REFLUX DISEASE
     Dosage: 20 MG, UNK
     Route: 048
     Dates: start: 2013
  2. MEPREDNISONE [Concomitant]
     Active Substance: MEPREDNISONE
     Indication: SCLERODERMA
     Dosage: 8 MG, UNK
     Route: 048
     Dates: start: 2013
  3. LEVOTHYROXINE. [Concomitant]
     Active Substance: LEVOTHYROXINE
     Indication: HYPOTHYROIDISM
     Dosage: 75 MCG, UNK
     Route: 048
     Dates: start: 2009
  4. MOSAPRIDE [Concomitant]
     Active Substance: MOSAPRIDE
  5. SILDENAFIL. [Concomitant]
     Active Substance: SILDENAFIL
     Dosage: 100 MG, OD
  6. METHOTREXATE [Concomitant]
     Active Substance: METHOTREXATE
     Indication: CONNECTIVE TISSUE DISORDER
     Dosage: 12 MG, UNK
     Route: 048
     Dates: start: 2013
  7. DILTIAZEM [Concomitant]
     Active Substance: DILTIAZEM
  8. MACITENTAN [Suspect]
     Active Substance: MACITENTAN
     Indication: PULMONARY ARTERIAL HYPERTENSION
     Dosage: 10 MG, QD
     Route: 048
     Dates: start: 20151208, end: 20160115
  9. WARFARIN [Concomitant]
     Active Substance: WARFARIN

REACTIONS (7)
  - Alanine aminotransferase increased [Recovered/Resolved]
  - Haemoglobin decreased [Recovered/Resolved]
  - Aspartate aminotransferase increased [Recovered/Resolved]
  - Hepatotoxicity [Recovered/Resolved]
  - Haematocrit decreased [Recovered/Resolved]
  - Asthenia [Recovered/Resolved]
  - Anaemia [Recovered/Resolved]

NARRATIVE: CASE EVENT DATE: 201512
